FAERS Safety Report 5362411-X (Version None)
Quarter: 2007Q2

REPORT INFORMATION
  Report Type: 
  Country: None (occurrence: None)
  Receive Date: 20070619
  Receipt Date: 20070614
  Transmission Date: 20071010
  Serious: Yes (Other)
  Sender: FDA-Public Use
  Company Number: US-ASTRAZENECA-2007UW14227

PATIENT
  Age: 63 Year
  Sex: Female
  Weight: 56.7 kg

DRUGS (3)
  1. NEXIUM [Suspect]
     Indication: GASTROOESOPHAGEAL REFLUX DISEASE
     Route: 048
     Dates: end: 20070201
  2. CALCIUM CHLORIDE [Concomitant]
  3. VAGNAL ESTRING [Concomitant]

REACTIONS (4)
  - CALCIUM METABOLISM DISORDER [None]
  - FALL [None]
  - HIP FRACTURE [None]
  - OSTEOPOROSIS [None]
